APPROVED DRUG PRODUCT: SMOFLIPID 20%
Active Ingredient: FISH OIL; MEDIUM CHAIN TRIGLYCERIDES; OLIVE OIL; SOYBEAN OIL
Strength: 3GM/100ML;6GM/100ML;5GM/100ML;6GM/100ML (250ML)
Dosage Form/Route: EMULSION;INTRAVENOUS
Application: N207648 | Product #002
Applicant: FRESENIUS KABI USA LLC
Approved: Jul 13, 2016 | RLD: Yes | RS: Yes | Type: RX